FAERS Safety Report 8978076 (Version 2)
Quarter: 2013Q1

REPORT INFORMATION
  Report Type: Spontaneous
  Country: GB (occurrence: GB)
  Receive Date: 20121221
  Receipt Date: 20130115
  Transmission Date: 20140127
  Serious: Yes (Other)
  Sender: FDA-Public Use
  Company Number: GB-JNJFOC-20121207662

PATIENT
  Age: 48 Year
  Sex: Male
  Weight: 110 kg

DRUGS (4)
  1. STELARA [Suspect]
     Indication: PSORIASIS
     Route: 058
     Dates: start: 20100305
  2. STELARA [Suspect]
     Indication: PSORIASIS
     Route: 058
  3. STELARA [Suspect]
     Indication: PSORIASIS
     Route: 058
     Dates: start: 20121211
  4. NEOTIGASON [Concomitant]
     Indication: PSORIASIS
     Route: 065
     Dates: start: 20100305

REACTIONS (5)
  - Diabetes mellitus [Not Recovered/Not Resolved]
  - Hepatic pain [Unknown]
  - Arthralgia [Unknown]
  - Therapeutic product ineffective [Unknown]
  - Blood test abnormal [Unknown]
